FAERS Safety Report 8614876-5 (Version None)
Quarter: 2012Q3

REPORT INFORMATION
  Report Type: 
  Country: None (occurrence: None)
  Receive Date: 20120823
  Receipt Date: 20120720
  Transmission Date: 20120928
  Serious: No
  Sender: FDA-Public Use
  Company Number: US-BRISTOL-MYERS SQUIBB COMPANY-16692360

PATIENT
  Age: 46 Year
  Sex: Male

DRUGS (1)
  1. KOMBIGLYZE XR [Suspect]
     Indication: TYPE 2 DIABETES MELLITUS
     Dosage: 1DF= DOSAGE: 2.5/1000MG (60 COUNT) TABLETS
     Dates: start: 20111110

REACTIONS (1)
  - BLOOD GLUCOSE ABNORMAL [None]
